FAERS Safety Report 9270548 (Version 3)
Quarter: 2013Q3

REPORT INFORMATION
  Report Type: Spontaneous
  Country: JP (occurrence: JP)
  Receive Date: 20130503
  Receipt Date: 20130829
  Transmission Date: 20140515
  Serious: Yes (Other)
  Sender: FDA-Public Use
  Company Number: JP-009507513-1305JPN000109

PATIENT
  Age: 89 Year
  Sex: Female
  Weight: 45 kg

DRUGS (6)
  1. GASTER [Suspect]
     Indication: GASTRITIS
     Dosage: 20 MG, UID/QD
     Route: 048
     Dates: end: 20130426
  2. GASTER [Suspect]
     Indication: GASTRIC ULCER
  3. FERRUM (FERROUS FUMARATE) [Concomitant]
     Indication: ANAEMIA
     Dosage: UNK
     Route: 048
     Dates: end: 20130407
  4. TENORMIN [Concomitant]
     Indication: HYPERTENSION
     Dosage: UNK
     Route: 048
     Dates: end: 20130407
  5. ASPARA K [Concomitant]
     Indication: HYPOKALAEMIA
     Dosage: UNK
     Dates: end: 20130407
  6. ALEVIATIN [Concomitant]
     Indication: EPILEPSY
     Dosage: UNK
     Route: 048
     Dates: end: 20130416

REACTIONS (1)
  - Hypokalaemia [Recovering/Resolving]
